FAERS Safety Report 22933407 (Version 3)
Quarter: 2024Q3

REPORT INFORMATION
  Report Type: Spontaneous
  Country: US (occurrence: US)
  Receive Date: 20230912
  Receipt Date: 20240723
  Transmission Date: 20241016
  Serious: Yes (Hospitalization)
  Sender: MERCK
  Company Number: US-009507513-2309USA001602

PATIENT
  Age: 76 Year
  Sex: Male
  Weight: 75 kg

DRUGS (8)
  1. BRIDION [Suspect]
     Active Substance: SUGAMMADEX
     Indication: Neuromuscular blockade reversal
     Dosage: STRENGTH 500 MG/5ML;16 MG/KG
     Route: 042
     Dates: start: 20230901, end: 20230901
  2. ROCURONIUM [Concomitant]
     Active Substance: ROCURONIUM BROMIDE
     Indication: Neuromuscular blockade
     Dosage: 50 MILLIGRAM, ONCE
     Route: 042
     Dates: start: 20230901, end: 20230901
  3. ROCURONIUM [Concomitant]
     Active Substance: ROCURONIUM BROMIDE
     Indication: Anaesthesia
  4. PROPOFOL [Concomitant]
     Active Substance: PROPOFOL
     Indication: Anaesthesia
     Dosage: 125 MILLIGRAM, ONCE
     Route: 042
     Dates: start: 20230901, end: 20230901
  5. FENTANYL [Concomitant]
     Active Substance: FENTANYL\FENTANYL CITRATE
     Indication: Anaesthesia
     Dosage: 50 MICROGRAM, ONCE
     Route: 042
     Dates: start: 20230901, end: 20230901
  6. ZOFRAN [Concomitant]
     Active Substance: ONDANSETRON HYDROCHLORIDE
     Indication: Anaesthesia
     Dosage: 4 DOSAGE FORM, ONCE
     Dates: start: 20230901, end: 20230901
  7. NARCAN [Concomitant]
     Active Substance: NALOXONE HYDROCHLORIDE
     Indication: Anaesthesia
     Dosage: 40 MICROGRAM, ONCE
     Dates: start: 20230901, end: 20230901
  8. VERSED [Concomitant]
     Active Substance: MIDAZOLAM HYDROCHLORIDE
     Indication: Anaesthesia
     Dosage: 2 MILLIGRAM, ONCE
     Dates: start: 20230901, end: 20230901

REACTIONS (1)
  - Drug ineffective [Recovered/Resolved]

NARRATIVE: CASE EVENT DATE: 20230901
